FAERS Safety Report 6144756-9 (Version None)
Quarter: 2009Q2

REPORT INFORMATION
  Report Type: 
  Country: None (occurrence: None)
  Receive Date: 20090401
  Receipt Date: 20090401
  Transmission Date: 20091009
  Serious: Yes (Other)
  Sender: FDA-Public Use
  Company Number: None

PATIENT
  Age: 9 Year
  Sex: Male
  Weight: 31.7518 kg

DRUGS (4)
  1. NASONEX [Suspect]
     Indication: MULTIPLE ALLERGIES
     Dosage: 1 SPRAY EACH NOSTRIL ONCE  A DAY NASAL
     Route: 045
     Dates: start: 20080301, end: 20080601
  2. NASONEX [Suspect]
     Indication: RHINITIS
     Dosage: 1 SPRAY EACH NOSTRIL ONCE  A DAY NASAL
     Route: 045
     Dates: start: 20080301, end: 20080601
  3. NASONEX [Suspect]
     Indication: MULTIPLE ALLERGIES
     Dosage: 1 SPRAY EACH NOSTRIL ONCE  A DAY NASAL
     Route: 045
     Dates: start: 20090325, end: 20090331
  4. NASONEX [Suspect]
     Indication: RHINITIS
     Dosage: 1 SPRAY EACH NOSTRIL ONCE  A DAY NASAL
     Route: 045
     Dates: start: 20090325, end: 20090331

REACTIONS (3)
  - CONSTIPATION [None]
  - FAECAL INCONTINENCE [None]
  - PAIN [None]
